FAERS Safety Report 8080138-0 (Version None)
Quarter: 2012Q1

REPORT INFORMATION
  Report Type: 
  Country: None (occurrence: None)
  Receive Date: 20120129
  Receipt Date: 20111027
  Transmission Date: 20120608
  Serious: No
  Sender: FDA-Public Use
  Company Number: US-ABBOTT-11P-163-0869666-00

PATIENT
  Sex: Female
  Weight: 81.72 kg

DRUGS (9)
  1. CALCIUM [Concomitant]
     Indication: MINERAL SUPPLEMENTATION
  2. UNKNOWN BLOOD PRESSURE MEDICATION [Concomitant]
     Indication: HYPERTENSION
  3. HUMIRA [Suspect]
     Indication: JUVENILE ARTHRITIS
     Route: 058
     Dates: start: 20110801
  4. FOLIC ACID [Concomitant]
     Indication: VITAMIN SUPPLEMENTATION
  5. UNKNOWN PSYCHOTICS [Concomitant]
     Indication: BIPOLAR DISORDER
  6. VITAMIN D [Concomitant]
     Indication: VITAMIN SUPPLEMENTATION
  7. HUMIRA [Suspect]
     Indication: CROHN'S DISEASE
  8. AZATHIOPRINE [Concomitant]
     Indication: CROHN'S DISEASE
  9. UNKNOWN PSYCHOTICS [Concomitant]
     Indication: SCHIZOPHRENIA

REACTIONS (1)
  - INFLUENZA [None]
